FAERS Safety Report 7302292-8 (Version None)
Quarter: 2011Q1

REPORT INFORMATION
  Report Type: 
  Country: None (occurrence: None)
  Receive Date: 20110218
  Receipt Date: 20110207
  Transmission Date: 20110831
  Serious: Yes (Hospitalization)
  Sender: FDA-Public Use
  Company Number: GR-WATSON-2011-01681

PATIENT
  Age: 11 Year
  Sex: Male

DRUGS (1)
  1. PREDNISOLONE [Suspect]
     Indication: HENOCH-SCHONLEIN PURPURA
     Dosage: 2 MG/KG, DAILY
     Route: 048

REACTIONS (3)
  - POSTERIOR REVERSIBLE ENCEPHALOPATHY SYNDROME [None]
  - HYPERTENSION [None]
  - GRAND MAL CONVULSION [None]
